FAERS Safety Report 9820969 (Version 1)
Quarter: 2014Q1

REPORT INFORMATION
  Report Type: Spontaneous
  Country: US (occurrence: None)
  Receive Date: 20140114
  Receipt Date: 20140114
  Transmission Date: 20141002
  Serious: Yes (Hospitalization)
  Sender: FDA-Public Use
  Company Number: None

PATIENT
  Age: 54 Year
  Sex: Male
  Weight: 90.72 kg

DRUGS (2)
  1. AMBIEN [Suspect]
     Indication: TERMINAL INSOMNIA
     Dosage: 1 PILL AT NIGHT AS NEEDED TAKEN BY MOUTH
     Route: 048
     Dates: start: 20130801, end: 20140108
  2. BENADRYL [Suspect]
     Dosage: 12.5 MG AS NEEDED TAKEN BY MOUTH
     Route: 048

REACTIONS (4)
  - Stupor [None]
  - Gait disturbance [None]
  - Thinking abnormal [None]
  - Overdose [None]
